FAERS Safety Report 4488598-9 (Version None)
Quarter: 2004Q4

REPORT INFORMATION
  Report Type: 
  Country: None (occurrence: None)
  Receive Date: 20041026
  Receipt Date: 20041014
  Transmission Date: 20050328
  Serious: Yes (Other)
  Sender: FDA-Public Use
  Company Number: US014071

PATIENT
  Age: 44 Year
  Sex: Male

DRUGS (7)
  1. MODAFINIL [Suspect]
     Indication: DEPRESSION
     Dosage: 100 MG QAM ORAL
     Route: 048
     Dates: start: 20030825, end: 20030902
  2. MODAFINIL [Suspect]
     Indication: HYPERSOMNIA
     Dosage: 100 MG QAM ORAL
     Route: 048
     Dates: start: 20030825, end: 20030902
  3. MODAFINIL [Suspect]
     Indication: DEPRESSION
     Dosage: 200 MG QAM ORAL
     Route: 048
     Dates: start: 20030903, end: 20030910
  4. MODAFINIL [Suspect]
     Indication: HYPERSOMNIA
     Dosage: 200 MG QAM ORAL
     Route: 048
     Dates: start: 20030903, end: 20030910
  5. MODAFINIL [Suspect]
     Indication: DEPRESSION
     Dosage: 100 MG QAM ORAL
     Route: 048
     Dates: start: 20030914, end: 20030914
  6. MODAFINIL [Suspect]
     Indication: HYPERSOMNIA
     Dosage: 100 MG QAM ORAL
     Route: 048
     Dates: start: 20030914, end: 20030914
  7. PROZAC [Concomitant]

REACTIONS (7)
  - AGITATION [None]
  - ANXIETY [None]
  - FATIGUE [None]
  - FEELING ABNORMAL [None]
  - INSOMNIA [None]
  - SUICIDAL IDEATION [None]
  - TENSION [None]
